FAERS Safety Report 19489644 (Version 1)
Quarter: 2021Q3

REPORT INFORMATION
  Report Type: Spontaneous
  Country: US (occurrence: US)
  Receive Date: 20210704
  Receipt Date: 20210704
  Transmission Date: 20211014
  Serious: No
  Sender: FDA-Public Use
  Company Number: US-ASTRAZENECA-2021A582502

PATIENT
  Sex: Female

DRUGS (1)
  1. DALIRESP [Suspect]
     Active Substance: ROFLUMILAST
     Route: 048

REACTIONS (4)
  - Diarrhoea [Unknown]
  - Rhinorrhoea [Unknown]
  - Nausea [Unknown]
  - Abdominal discomfort [Unknown]
